FAERS Safety Report 6842286-X (Version None)
Quarter: 2010Q3

REPORT INFORMATION
  Report Type: 
  Country: None (occurrence: None)
  Receive Date: 20100714
  Receipt Date: 20070723
  Transmission Date: 20110219
  Serious: No
  Sender: FDA-Public Use
  Company Number: US-PFIZER INC-2007062536

PATIENT
  Sex: Female
  Weight: 44.09 kg

DRUGS (5)
  1. CHANTIX [Suspect]
     Indication: SMOKING CESSATION THERAPY
     Dates: start: 20070714
  2. SPIRIVA [Concomitant]
  3. LISINOPRIL [Concomitant]
     Indication: HYPERTENSION
  4. PARA-SELTZER [Concomitant]
  5. COUGH AND COLD PREPARATIONS [Concomitant]

REACTIONS (3)
  - INFLUENZA LIKE ILLNESS [None]
  - NAUSEA [None]
  - RETCHING [None]
